FAERS Safety Report 20675028 (Version 1)
Quarter: 2022Q2

REPORT INFORMATION
  Report Type: Report from Study
  Country: IT (occurrence: IT)
  Receive Date: 20220405
  Receipt Date: 20220405
  Transmission Date: 20220721
  Serious: Yes (Other)
  Sender: FDA-Public Use
  Company Number: IT-JNJFOC-20220405483

PATIENT
  Age: 28 Year
  Sex: Male

DRUGS (6)
  1. DARUNAVIR [Suspect]
     Active Substance: DARUNAVIR
     Indication: HIV infection
     Route: 065
  2. ABACAVIR [Suspect]
     Active Substance: ABACAVIR
     Indication: HIV infection
     Route: 065
  3. LAMIVUDINE [Suspect]
     Active Substance: LAMIVUDINE
     Route: 065
  4. COBICISTAT\ELVITEGRAVIR\EMTRICITABINE\TENOFOVIR DISOPROXIL FUMARATE [Suspect]
     Active Substance: COBICISTAT\ELVITEGRAVIR\EMTRICITABINE\TENOFOVIR DISOPROXIL FUMARATE
     Route: 065
  5. ATAZANAVIR [Suspect]
     Active Substance: ATAZANAVIR
     Route: 065
  6. EMTRICITABINE [Suspect]
     Active Substance: EMTRICITABINE
     Route: 065

REACTIONS (9)
  - Disease recurrence [Recovered/Resolved]
  - Nervous system disorder [Recovered/Resolved]
  - Headache [Recovered/Resolved]
  - Cerebral disorder [Recovered/Resolved]
  - Peripheral venous disease [Recovered/Resolved]
  - Virologic failure [Recovered/Resolved]
  - CSF HIV escape syndrome [Recovered/Resolved]
  - Brain oedema [Recovered/Resolved]
  - White matter lesion [Recovered/Resolved]
